FAERS Safety Report 13079699 (Version 1)
Quarter: 2017Q1

REPORT INFORMATION
  Report Type: Spontaneous
  Country: US (occurrence: US)
  Receive Date: 20170103
  Receipt Date: 20170103
  Transmission Date: 20170428
  Serious: No
  Sender: FDA-Public Use
  Company Number: US-BAYER-2016-243459

PATIENT
  Age: 71 Year
  Sex: Male
  Weight: 90.98 kg

DRUGS (1)
  1. MIRALAX [Suspect]
     Active Substance: POLYETHYLENE GLYCOL 3350
     Indication: GASTROINTESTINAL DISORDER
     Dosage: 1 DF, UNK
     Route: 048

REACTIONS (7)
  - Off label use [Unknown]
  - Hyperventilation [Unknown]
  - Fatigue [Unknown]
  - Product use issue [Unknown]
  - Product use issue [Unknown]
  - Drug ineffective [Unknown]
  - Balance disorder [None]

NARRATIVE: CASE EVENT DATE: 201612
